FAERS Safety Report 13519524 (Version 1)
Quarter: 2017Q2

REPORT INFORMATION
  Report Type: Spontaneous
  Country: DE (occurrence: DE)
  Receive Date: 20170505
  Receipt Date: 20170505
  Transmission Date: 20170830
  Serious: Yes (Other)
  Sender: FDA-Public Use
  Company Number: GXKR2017DE002500

PATIENT

DRUGS (6)
  1. ABILIFY [Concomitant]
     Active Substance: ARIPIPRAZOLE
     Indication: SCHIZOAFFECTIVE DISORDER
     Dosage: UNK UKN, UNK
     Route: 064
     Dates: start: 20160122, end: 20160307
  2. MELPERON 1 A PHARMA [Concomitant]
     Indication: SLEEP DISORDER
     Dosage: 6.25 MG, PRN
     Route: 064
     Dates: start: 20160122, end: 20160516
  3. QUETIAPINE ? 1 A PHARMA [Suspect]
     Active Substance: QUETIAPINE
     Indication: SCHIZOAFFECTIVE DISORDER
     Dosage: UNK UKN, UNK
     Route: 064
     Dates: start: 20160122, end: 20161030
  4. LORAZEPAM. [Concomitant]
     Active Substance: LORAZEPAM
     Indication: SCHIZOAFFECTIVE DISORDER
     Dosage: UNK UKN, PRN
     Route: 064
  5. L-THYROXINE [Concomitant]
     Active Substance: LEVOTHYROXINE
     Indication: HYPOTHYROIDISM
     Dosage: 125 UG, QD
     Route: 064
  6. QUETIAPIN HEXAL [Suspect]
     Active Substance: QUETIAPINE FUMARATE
     Indication: SCHIZOAFFECTIVE DISORDER
     Dosage: 100 MG, PRN
     Route: 064

REACTIONS (1)
  - Large for dates baby [Unknown]

NARRATIVE: CASE EVENT DATE: 20161030
